FAERS Safety Report 16404091 (Version 2)
Quarter: 2019Q2

REPORT INFORMATION
  Report Type: Spontaneous
  Country: CN (occurrence: CN)
  Receive Date: 20190607
  Receipt Date: 20190608
  Transmission Date: 20190711
  Serious: Yes (Hospitalization)
  Sender: FDA-Public Use
  Company Number: CN-JNJFOC-20190540765

PATIENT

DRUGS (7)
  1. IBUPROFEN. [Suspect]
     Active Substance: IBUPROFEN
     Indication: PAIN
     Route: 065
  2. PARACETAMOL [Suspect]
     Active Substance: ACETAMINOPHEN
     Indication: PAIN
     Route: 065
  3. CARBAMAZEPINE. [Suspect]
     Active Substance: CARBAMAZEPINE
     Indication: HERPES ZOSTER
     Route: 065
  4. IBUPROFEN. [Suspect]
     Active Substance: IBUPROFEN
     Route: 065
  5. PARACETAMOL [Suspect]
     Active Substance: ACETAMINOPHEN
     Route: 065
  6. CARBAMAZEPINE. [Suspect]
     Active Substance: CARBAMAZEPINE
     Indication: PAIN
     Route: 065
  7. RISPERIDONE. [Concomitant]
     Active Substance: RISPERIDONE
     Indication: ANTIDEPRESSANT THERAPY
     Route: 065

REACTIONS (15)
  - Hepatic function abnormal [Unknown]
  - Dermatitis exfoliative [Unknown]
  - Urticaria [Unknown]
  - Renal impairment [Unknown]
  - Toxic epidermal necrolysis [Unknown]
  - Stevens-Johnson syndrome [Unknown]
  - Rash erythematous [Unknown]
  - Chest discomfort [Unknown]
  - Pyrexia [Unknown]
  - Acute generalised exanthematous pustulosis [Unknown]
  - Abdominal pain [Unknown]
  - Drug reaction with eosinophilia and systemic symptoms [Unknown]
  - Drug eruption [Unknown]
  - Erythema multiforme [Unknown]
  - Fixed eruption [Unknown]
